FAERS Safety Report 10918355 (Version 1)
Quarter: 2015Q1

REPORT INFORMATION
  Report Type: Spontaneous
  Country: US (occurrence: US)
  Receive Date: 20150316
  Receipt Date: 20150316
  Transmission Date: 20150721
  Serious: No
  Sender: FDA-Public Use
  Company Number: US-GALDERMA-US14002536

PATIENT
  Age: 53 Year
  Sex: Female

DRUGS (10)
  1. TRI-LUMA [Suspect]
     Active Substance: FLUOCINOLONE ACETONIDE\HYDROQUINONE\TRETINOIN
     Route: 061
     Dates: start: 20140630, end: 20140702
  2. TRADER JOES AVALON LAVENDER CREAM [Concomitant]
     Indication: THERAPEUTIC SKIN CARE TOPICAL
     Route: 061
     Dates: start: 1999
  3. VITAMIN E OIL [Concomitant]
     Indication: THERMAL BURN
  4. VITAMIN E OIL [Concomitant]
     Indication: LENTIGO
  5. BADGER BROAD SPECTRUM SUNSCREEN SPF 35 [Concomitant]
     Indication: PROPHYLAXIS AGAINST SOLAR RADIATION
     Route: 061
     Dates: start: 2008
  6. VITAMIN E OIL [Concomitant]
     Indication: DRY SKIN
     Route: 061
  7. TRADER JOES AVALON LAVENDER CREAM [Concomitant]
     Indication: DRY SKIN PROPHYLAXIS
  8. TRI-LUMA [Suspect]
     Active Substance: FLUOCINOLONE ACETONIDE\HYDROQUINONE\TRETINOIN
     Route: 061
     Dates: start: 20140601, end: 20140606
  9. SHEA BUTTER [Concomitant]
     Active Substance: SHEA BUTTER
     Indication: LENTIGO
     Route: 061
     Dates: start: 1984
  10. TRI-LUMA [Suspect]
     Active Substance: FLUOCINOLONE ACETONIDE\HYDROQUINONE\TRETINOIN
     Indication: SOLAR LENTIGO
     Route: 061
     Dates: start: 20140501

REACTIONS (9)
  - Skin hypopigmentation [Recovering/Resolving]
  - Drug ineffective for unapproved indication [Not Recovered/Not Resolved]
  - Dry skin [Recovered/Resolved]
  - Skin fissures [Recovered/Resolved]
  - Contact lens intolerance [Recovered/Resolved]
  - Inappropriate schedule of drug administration [Recovered/Resolved]
  - Dry eye [Recovered/Resolved]
  - Abnormal sensation in eye [Recovered/Resolved]
  - Product use issue [Recovered/Resolved]

NARRATIVE: CASE EVENT DATE: 201405
